FAERS Safety Report 6385272-9 (Version None)
Quarter: 2009Q4

REPORT INFORMATION
  Report Type: 
  Country: None (occurrence: None)
  Receive Date: 20091002
  Receipt Date: 20090416
  Transmission Date: 20100525
  Serious: No
  Sender: FDA-Public Use
  Company Number: US-ASTRAZENECA-2008UW16621

PATIENT
  Age: 67 Year
  Sex: Female
  Weight: 70.3 kg

DRUGS (6)
  1. ARIMIDEX [Suspect]
     Indication: BREAST CANCER
     Route: 048
     Dates: start: 20070403
  2. LYSINOPRIL/HYDROCHLOROTHIAZIDE [Concomitant]
  3. ALEVE [Concomitant]
  4. SYNTHROID [Concomitant]
  5. LIPITOR [Concomitant]
  6. ASPIRIN [Concomitant]

REACTIONS (6)
  - ANOGENITAL WARTS [None]
  - ARTHRALGIA [None]
  - HOT FLUSH [None]
  - INSOMNIA [None]
  - MOOD ALTERED [None]
  - NIGHT SWEATS [None]
